FAERS Safety Report 5334440-3 (Version None)
Quarter: 2007Q2

REPORT INFORMATION
  Report Type: 
  Country: None (occurrence: None)
  Receive Date: 20070525
  Receipt Date: 20070216
  Transmission Date: 20071010
  Serious: No
  Sender: FDA-Public Use
  Company Number: A0638444A

PATIENT
  Age: 73 Year
  Sex: Female
  Weight: 34.5 kg

DRUGS (12)
  1. FLOLAN [Suspect]
     Indication: PULMONARY HYPERTENSION
     Dosage: 20NGKM UNKNOWN
     Route: 042
     Dates: start: 20070103
  2. DIGOXIN [Concomitant]
     Dosage: 250MCG AS DIRECTED
     Route: 048
  3. STERILE WATER FOR INJECTION [Concomitant]
  4. TYLENOL [Concomitant]
     Dosage: 650MG AS REQUIRED
     Route: 048
  5. FOLIC ACID [Concomitant]
     Dosage: 1MG PER DAY
     Route: 048
  6. MAGNESIUM OXIDE [Concomitant]
     Dosage: 400MG TWICE PER DAY
     Route: 048
  7. CALCIUM CHLORIDE [Concomitant]
     Dosage: 500MG TWICE PER DAY
     Route: 048
  8. DOCUSATE [Concomitant]
     Dosage: 100MG TWICE PER DAY
     Route: 048
  9. FERROUS SULFATE [Concomitant]
     Dosage: 325MG TWICE PER DAY
     Route: 048
  10. COUMADIN [Concomitant]
     Dosage: 5MG PER DAY
     Route: 048
  11. THYROID TAB [Concomitant]
     Dosage: 60MG PER DAY
     Route: 048
  12. LASIX [Concomitant]
     Dosage: 40MG PER DAY
     Route: 048

REACTIONS (1)
  - ALOPECIA [None]
